FAERS Safety Report 18188806 (Version 1)
Quarter: 2020Q3

REPORT INFORMATION
  Report Type: Spontaneous
  Country: IN (occurrence: IN)
  Receive Date: 20200825
  Receipt Date: 20200825
  Transmission Date: 20201103
  Serious: Yes (Other)
  Sender: FDA-Public Use
  Company Number: IN-PFIZER INC-2020324704

PATIENT
  Age: 69 Year
  Sex: Male

DRUGS (1)
  1. SUTENT [Suspect]
     Active Substance: SUNITINIB MALATE
     Indication: METASTATIC RENAL CELL CARCINOMA
     Dosage: 50 MG, 2X/DAY (1?0?1 X 28 DAYS)
     Route: 048
     Dates: start: 20200814

REACTIONS (2)
  - Pain [Unknown]
  - Urinary retention [Unknown]

NARRATIVE: CASE EVENT DATE: 2020
